FAERS Safety Report 5392692-8 (Version None)
Quarter: 2007Q3

REPORT INFORMATION
  Report Type: 
  Country: None (occurrence: None)
  Receive Date: 20070720
  Receipt Date: 20070711
  Transmission Date: 20080115
  Serious: Yes (Other)
  Sender: FDA-Public Use
  Company Number: GB-ABBOTT-05P-167-0320222-00

PATIENT
  Sex: Female

DRUGS (3)
  1. EPILIM [Suspect]
     Indication: DRUG EXPOSURE DURING PREGNANCY
     Route: 064
  2. CARBAMAZEPINE [Suspect]
     Indication: DRUG EXPOSURE DURING PREGNANCY
  3. CLONAZEPAM [Suspect]
     Indication: DRUG EXPOSURE DURING PREGNANCY

REACTIONS (8)
  - ATRIAL SEPTAL DEFECT [None]
  - DEAFNESS [None]
  - DYSMORPHISM [None]
  - EXTREMITY CONTRACTURE [None]
  - FOETAL ANTICONVULSANT SYNDROME [None]
  - KIDNEY MALFORMATION [None]
  - MYOPIA [None]
  - NEURODEVELOPMENTAL DISORDER [None]
